FAERS Safety Report 17204350 (Version 1)
Quarter: 2019Q4

REPORT INFORMATION
  Report Type: Report from Study
  Country: US (occurrence: US)
  Receive Date: 20191226
  Receipt Date: 20191226
  Transmission Date: 20200122
  Serious: Yes (Other)
  Sender: FDA-Public Use
  Company Number: US-ACTELION-A-NJ2019-199563

PATIENT
  Age: 48 Year
  Sex: Female

DRUGS (1)
  1. OPSUMIT [Suspect]
     Active Substance: MACITENTAN
     Indication: PRODUCT USED FOR UNKNOWN INDICATION
     Dosage: 10 MG, QD
     Route: 048

REACTIONS (4)
  - Ovarian neoplasm [Unknown]
  - Pruritus [Unknown]
  - Amenorrhoea [Unknown]
  - Anxiety [Unknown]

NARRATIVE: CASE EVENT DATE: 20191210
